FAERS Safety Report 6621971-9 (Version None)
Quarter: 2010Q1

REPORT INFORMATION
  Report Type: 
  Country: None (occurrence: None)
  Receive Date: 20100303
  Receipt Date: 20100225
  Transmission Date: 20100710
  Serious: Yes (Death, Hospitalization, Other)
  Sender: FDA-Public Use
  Company Number: 2010US000120

PATIENT
  Age: 57 Year
  Sex: Male

DRUGS (1)
  1. PROGRAF [Suspect]
     Indication: LIVER TRANSPLANT
     Dosage: 1.5 MG, QID, 1.5 MG, UID/QD
     Dates: start: 19970327

REACTIONS (12)
  - DIALYSIS [None]
  - GOUT [None]
  - HEPATIC CIRRHOSIS [None]
  - HEPATIC FAILURE [None]
  - HEPATIC NEOPLASM MALIGNANT [None]
  - HEPATITIS C [None]
  - HEPATORENAL SYNDROME [None]
  - HYPERLIPIDAEMIA [None]
  - PAIN [None]
  - PORTAL VEIN THROMBOSIS [None]
  - RENAL FAILURE ACUTE [None]
  - TYPE 2 DIABETES MELLITUS [None]
